FAERS Safety Report 25484989 (Version 1)
Quarter: 2025Q2

REPORT INFORMATION
  Report Type: Spontaneous
  Country: US (occurrence: US)
  Receive Date: 20250626
  Receipt Date: 20250626
  Transmission Date: 20250717
  Serious: Yes (Other)
  Sender: RANBAXY
  Company Number: US-SUN PHARMACEUTICAL INDUSTRIES LTD-2025R1-512915

PATIENT
  Age: 80 Year
  Sex: Female

DRUGS (1)
  1. CARBIDOPA AND LEVODOPA [Suspect]
     Active Substance: CARBIDOPA\LEVODOPA
     Indication: Impulse-control disorder
     Route: 065

REACTIONS (4)
  - Dyskinesia [Recovering/Resolving]
  - Fall [Unknown]
  - Hot flush [Unknown]
  - Hyperhidrosis [Unknown]
